FAERS Safety Report 6435100-8 (Version None)
Quarter: 2009Q4

REPORT INFORMATION
  Report Type: 
  Country: None (occurrence: None)
  Receive Date: 20091110
  Receipt Date: 20091029
  Transmission Date: 20100525
  Serious: Yes (Hospitalization, Other)
  Sender: FDA-Public Use
  Company Number: SG-PFIZER INC-2009290783

PATIENT
  Age: 71 Year
  Sex: Female

DRUGS (1)
  1. PHENYTOIN AND PHENYTOIN SODIUM [Suspect]
     Dosage: UNK

REACTIONS (2)
  - BRADYCARDIA [None]
  - HYPOTENSION [None]
